FAERS Safety Report 22854101 (Version 3)
Quarter: 2023Q4

REPORT INFORMATION
  Report Type: Spontaneous
  Country: US (occurrence: US)
  Receive Date: 20230823
  Receipt Date: 20231121
  Transmission Date: 20240110
  Serious: No
  Sender: FDA-Public Use
  Company Number: US-SA-SAC20230821001162

PATIENT
  Age: 28 Year
  Sex: Female

DRUGS (1)
  1. DUPIXENT [Suspect]
     Active Substance: DUPILUMAB
     Indication: Dermatitis atopic
     Dosage: 300 MG, QOW
     Route: 058

REACTIONS (9)
  - Abdominal pain [Unknown]
  - Back pain [Unknown]
  - Hepatic pain [Unknown]
  - Pain [Unknown]
  - Hepatomegaly [Unknown]
  - Cholelithiasis [Unknown]
  - Dry skin [Unknown]
  - Eye pain [Unknown]
  - Eye pruritus [Unknown]
